FAERS Safety Report 7755584-2 (Version None)
Quarter: 2011Q3

REPORT INFORMATION
  Report Type: 
  Country: None (occurrence: None)
  Receive Date: 20110914
  Receipt Date: 20110818
  Transmission Date: 20111222
  Serious: Yes (Hospitalization, Other)
  Sender: FDA-Public Use
  Company Number: 07-AUR-01411

PATIENT
  Age: 55 Year
  Sex: Female

DRUGS (4)
  1. IMIPRAMINE [Suspect]
     Indication: DEPRESSION
     Dosage: 25 MG (25 MG, 1 IN 1 D)
     Dates: start: 20060509, end: 20060707
  2. IMIPRAMINE [Suspect]
     Indication: ANXIETY DISORDER
     Dosage: 25 MG (25 MG, 1 IN 1 D)
     Dates: start: 20060509, end: 20060707
  3. CITALOPRAM HYDROBROMIDE [Suspect]
     Indication: DEPRESSION
     Dosage: 20 MG (20 MG, 1 IN 1 D),ORAL
     Route: 048
     Dates: start: 20050701
  4. LEVOTHYROXINE SODIUM [Concomitant]

REACTIONS (6)
  - ANGLE CLOSURE GLAUCOMA [None]
  - PUPILLARY REFLEX IMPAIRED [None]
  - HEADACHE [None]
  - VISION BLURRED [None]
  - ANXIETY DISORDER [None]
  - HYPERTHYROIDISM [None]
